FAERS Safety Report 14919742 (Version 1)
Quarter: 2018Q2

REPORT INFORMATION
  Report Type: Spontaneous
  Country: US (occurrence: US)
  Receive Date: 20180521
  Receipt Date: 20180521
  Transmission Date: 20180711
  Serious: Yes (Other)
  Sender: FDA-Public Use
  Company Number: US-GLAXOSMITHKLINE-US2018GSK089278

PATIENT

DRUGS (1)
  1. VENTOLIN HFA [Suspect]
     Active Substance: ALBUTEROL SULFATE

REACTIONS (6)
  - Speech disorder [Unknown]
  - Neoplasm malignant [Unknown]
  - Cancer surgery [Unknown]
  - Jaw operation [Unknown]
  - Ill-defined disorder [Unknown]
  - Inability to afford medication [Unknown]
